FAERS Safety Report 8901427 (Version 1)
Quarter: 2012Q4

REPORT INFORMATION
  Report Type: 
  Country: US (occurrence: US)
  Receive Date: 20121108
  Receipt Date: 20121108
  Transmission Date: 20130627
  Serious: No
  Sender: FDA-Public Use
  Company Number: US-ASTRAZENECA-2012SE82192

PATIENT
  Age: 86 Year
  Sex: Male
  Weight: 81.6 kg

DRUGS (5)
  1. NEXIUM [Suspect]
     Indication: BARRETT^S OESOPHAGUS
     Route: 048
     Dates: start: 2005
  2. SYNTHROID [Concomitant]
  3. ASA [Concomitant]
  4. CENTRUM SILVER [Concomitant]
  5. METAMUCIL [Concomitant]

REACTIONS (4)
  - Fatigue [Unknown]
  - Muscle atrophy [Unknown]
  - Constipation [Unknown]
  - Off label use [Unknown]
